FAERS Safety Report 9199013 (Version 2)
Quarter: 2013Q3

REPORT INFORMATION
  Report Type: Report from Study
  Country: PL (occurrence: PL)
  Receive Date: 20130329
  Receipt Date: 20130801
  Transmission Date: 20140515
  Serious: Yes (Death, Hospitalization)
  Sender: FDA-Public Use
  Company Number: PL-AMGEN-POLCT2013021819

PATIENT
  Age: 83 Year
  Sex: Female

DRUGS (1)
  1. DENOSUMAB [Suspect]
     Indication: OSTEOPOROSIS POSTMENOPAUSAL
     Dosage: 1 ML, UNK
     Route: 058
     Dates: start: 20080730, end: 20120827

REACTIONS (1)
  - Death [Fatal]
